FAERS Safety Report 14253042 (Version 1)
Quarter: 2017Q4

REPORT INFORMATION
  Report Type: Spontaneous
  Country: NZ (occurrence: NZ)
  Receive Date: 20171205
  Receipt Date: 20171205
  Transmission Date: 20180321
  Serious: Yes (Other)
  Sender: FDA-Public Use
  Company Number: NZ-ABBVIE-17S-118-2176515-00

PATIENT
  Age: 54 Year
  Sex: Male

DRUGS (1)
  1. VIEKIRA PAK [Suspect]
     Active Substance: DASABUVIR\OMBITASVIR\PARITAPREVIR\RITONAVIR
     Indication: ACUTE HEPATITIS C
     Route: 048
     Dates: start: 201610

REACTIONS (2)
  - Affective disorder [Unknown]
  - Affect lability [Unknown]

NARRATIVE: CASE EVENT DATE: 201701
